FAERS Safety Report 4888246-X (Version None)
Quarter: 2006Q1

REPORT INFORMATION
  Report Type: 
  Country: None (occurrence: None)
  Receive Date: 20060119
  Receipt Date: 20060117
  Transmission Date: 20060701
  Serious: Yes (Other)
  Sender: FDA-Public Use
  Company Number: 2005-DE-05676GD

PATIENT
  Sex: Male

DRUGS (1)
  1. CODEINE SUL TAB [Suspect]
     Dosage: LOW DOSAGE

REACTIONS (2)
  - COMA [None]
  - METABOLIC DISORDER [None]
